FAERS Safety Report 13762833 (Version 11)
Quarter: 2018Q2

REPORT INFORMATION
  Report Type: Spontaneous
  Country: JP (occurrence: JP)
  Receive Date: 20170718
  Receipt Date: 20180608
  Transmission Date: 20180711
  Serious: Yes (Life-Threatening, Hospitalization, Other)
  Sender: FDA-Public Use
  Company Number: JP-009507513-1707JPN000247J

PATIENT
  Age: 67 Year
  Sex: Male
  Weight: 78 kg

DRUGS (1)
  1. KEYTRUDA [Suspect]
     Active Substance: PEMBROLIZUMAB
     Indication: LUNG ADENOCARCINOMA
     Dosage: 200 MG, Q3W
     Route: 041
     Dates: start: 20170530, end: 20170620

REACTIONS (4)
  - Histiocytosis haematophagic [Recovered/Resolved with Sequelae]
  - Hepatic enzyme increased [Not Recovered/Not Resolved]
  - Pyrexia [Unknown]
  - Metabolic encephalopathy [Recovered/Resolved with Sequelae]

NARRATIVE: CASE EVENT DATE: 20170702
